FAERS Safety Report 4924249-4 (Version None)
Quarter: 2006Q1

REPORT INFORMATION
  Report Type: 
  Country: None (occurrence: None)
  Receive Date: 20060227
  Receipt Date: 20060221
  Transmission Date: 20060701
  Serious: Yes (Hospitalization)
  Sender: FDA-Public Use
  Company Number: 2006AP00891

PATIENT
  Sex: Female

DRUGS (1)
  1. NAROPIN [Suspect]
     Indication: CAESAREAN SECTION
     Route: 042
     Dates: start: 20060208, end: 20060208

REACTIONS (2)
  - GAIT DISTURBANCE [None]
  - HYPOAESTHESIA [None]
